FAERS Safety Report 20598144 (Version 9)
Quarter: 2022Q3

REPORT INFORMATION
  Report Type: Report from Study
  Country: IN (occurrence: None)
  Receive Date: 20220315
  Receipt Date: 20220811
  Transmission Date: 20221026
  Serious: Yes (Hospitalization)
  Sender: FDA-Public Use
  Company Number: IN-ROCHE-3047665

PATIENT
  Age: 51 Year
  Sex: Female
  Weight: 64.6 kg

DRUGS (11)
  1. ATEZOLIZUMAB [Suspect]
     Active Substance: ATEZOLIZUMAB
     Indication: HER2 positive breast cancer
     Dosage: DOSE LAST STUDY DRUG ADMIN PRIOR AE AND SAE AND START DATE OF MOST RECENT DOSE OF STUDY DRUG PRIOR T
     Route: 041
     Dates: start: 20220204
  2. ADO-TRASTUZUMAB EMTANSINE [Suspect]
     Active Substance: ADO-TRASTUZUMAB EMTANSINE
     Indication: HER2 positive breast cancer
     Dosage: DOSE LAST STUDY DRUG ADMIN PRIOR AE/SAE WAS 231 MG/KG AND START DATE OF MOST RECENT DOSE OF STUDY DR
     Route: 042
     Dates: start: 20220204
  3. LETROZOLE [Concomitant]
     Active Substance: LETROZOLE
     Indication: Hormone therapy
     Route: 048
  4. METFORMIN [Concomitant]
     Active Substance: METFORMIN HYDROCHLORIDE
     Indication: Type 2 diabetes mellitus
  5. TORGLIP [Concomitant]
     Indication: Type 2 diabetes mellitus
     Dates: start: 20220203
  6. GLIMESTAR-M [Concomitant]
     Indication: Diabetes mellitus
     Dates: start: 20220203
  7. ACETAMINOPHEN [Concomitant]
     Active Substance: ACETAMINOPHEN
     Indication: Pain
     Dosage: NEXT DOSE RECEIVED ON 07/MAR/2022 (1GM).
     Dates: start: 20220305, end: 20220305
  8. DECOLIC [DIAZEPAM;DICYCLOVERINE HYDROCHLORIDE] [Concomitant]
     Route: 048
     Dates: start: 20220310
  9. CREMAFFIN [Concomitant]
     Indication: Constipation
     Dates: start: 20220307, end: 20220308
  10. CALCIUM CARBONATE\CHOLECALCIFEROL [Concomitant]
     Active Substance: CALCIUM CARBONATE\CHOLECALCIFEROL
     Indication: Prophylaxis
     Dates: start: 20220108
  11. INSULIN NOS [Concomitant]
     Active Substance: INSULIN NOS
     Indication: Type 2 diabetes mellitus
     Dates: start: 20220203, end: 20220203

REACTIONS (1)
  - Gastritis [Recovered/Resolved]

NARRATIVE: CASE EVENT DATE: 20220305
